FAERS Safety Report 10195885 (Version 1)
Quarter: 2014Q2

REPORT INFORMATION
  Report Type: Spontaneous
  Country: US (occurrence: None)
  Receive Date: 20140522
  Receipt Date: 20140522
  Transmission Date: 20141212
  Serious: Yes (Death)
  Sender: FDA-Public Use
  Company Number: UNT-2014-000166

PATIENT
  Age: 59 Year
  Sex: Female
  Weight: 45.5 kg

DRUGS (4)
  1. TYVASO [Suspect]
     Indication: COR PULMONALE CHRONIC
     Dosage: (9 BREATHS)
     Route: 055
     Dates: start: 20130327
  2. TYVASO [Suspect]
     Dosage: (9 BREATHS)
     Route: 055
     Dates: start: 20130327
  3. LETAIRIS (AMBRISENTAN) (TABLETS) [Concomitant]
  4. REVATIO (SILDENAFIL CITRATE) (SILDENAFIL CITRATE) [Concomitant]

REACTIONS (1)
  - Death [None]
